FAERS Safety Report 9911526 (Version 1)
Quarter: 2014Q1

REPORT INFORMATION
  Report Type: Spontaneous
  Country: BR (occurrence: BR)
  Receive Date: 20140219
  Receipt Date: 20140219
  Transmission Date: 20141002
  Serious: Yes (Other)
  Sender: FDA-Public Use
  Company Number: PHHY2014BR019991

PATIENT
  Sex: 0

DRUGS (1)
  1. RASILEZ AMLO [Suspect]
     Dosage: 1 DF (300/10), DAILY

REACTIONS (2)
  - Diabetes mellitus [Unknown]
  - Hypertension [Unknown]
